FAERS Safety Report 8277779-4 (Version None)
Quarter: 2012Q2

REPORT INFORMATION
  Report Type: 
  Country: None (occurrence: None)
  Receive Date: 20120412
  Receipt Date: 20120402
  Transmission Date: 20120825
  Serious: Yes (Other)
  Sender: FDA-Public Use
  Company Number: US-ELI_LILLY_AND_COMPANY-US201204001764

PATIENT
  Sex: Female

DRUGS (3)
  1. CYMBALTA [Suspect]
     Indication: NEURALGIA
     Dosage: 30 MG, UNKNOWN
  2. CYMBALTA [Suspect]
     Dosage: 60 MG, UNKNOWN
  3. VICODIN [Concomitant]
     Indication: PAIN

REACTIONS (6)
  - OEDEMA PERIPHERAL [None]
  - BLISTER [None]
  - FEELING HOT [None]
  - DRUG INEFFECTIVE [None]
  - SKIN EXFOLIATION [None]
  - OFF LABEL USE [None]
